FAERS Safety Report 10345155 (Version 2)
Quarter: 2014Q3

REPORT INFORMATION
  Report Type: Spontaneous
  Country: US (occurrence: US)
  Receive Date: 20140728
  Receipt Date: 20140925
  Transmission Date: 20150326
  Serious: No
  Sender: FDA-Public Use
  Company Number: US-TEVA-497331USA

PATIENT
  Sex: Female
  Weight: 68.1 kg

DRUGS (4)
  1. PRENATAL FORMULA [Concomitant]
     Dosage: 27-1 MG
     Route: 048
  2. AVIANE [Concomitant]
     Active Substance: ETHINYL ESTRADIOL\LEVONORGESTREL
     Dosage: 0.1-20 MG-MCG
     Route: 048
  3. PARAGARD T380A [Suspect]
     Active Substance: COPPER
     Indication: CONTRACEPTION
     Route: 015
     Dates: end: 20140723
  4. MULTIVITAMINS [Concomitant]
     Active Substance: VITAMINS
     Route: 048

REACTIONS (2)
  - Menorrhagia [Unknown]
  - Device breakage [Recovered/Resolved]
